FAERS Safety Report 13272193 (Version 2)
Quarter: 2017Q1

REPORT INFORMATION
  Report Type: Spontaneous
  Country: FR (occurrence: FR)
  Receive Date: 20170227
  Receipt Date: 20170302
  Transmission Date: 20170428
  Serious: Yes (Life-Threatening, Hospitalization, Other)
  Sender: FDA-Public Use
  Company Number: FR-GLAXOSMITHKLINE-FR2017GSK025888

PATIENT
  Age: 19 Year
  Sex: Female

DRUGS (10)
  1. ZELITREX [Suspect]
     Active Substance: VALACYCLOVIR HYDROCHLORIDE
     Indication: PROPHYLAXIS
     Dosage: 500 MG, BID
     Route: 048
     Dates: start: 201609
  2. SYMBICORT [Suspect]
     Active Substance: BUDESONIDE\FORMOTEROL FUMARATE DIHYDRATE
     Indication: ASTHMA
     Dosage: UNK
     Route: 048
     Dates: start: 201609
  3. BACTRIM [Suspect]
     Active Substance: SULFAMETHOXAZOLE\TRIMETHOPRIM
     Indication: PROPHYLAXIS
     Dosage: UNK
     Route: 048
     Dates: start: 201609
  4. ORACILLINE [Suspect]
     Active Substance: PENICILLIN V
     Indication: PROPHYLAXIS
     Dosage: 1 MILLION IU, BID
     Route: 048
     Dates: start: 201609
  5. NEORAL [Suspect]
     Active Substance: CYCLOSPORINE
     Indication: PROPHYLAXIS AGAINST TRANSPLANT REJECTION
     Dosage: UNK UNK, 1D
     Route: 048
     Dates: start: 201609
  6. LUTERAN [Suspect]
     Active Substance: CHLORMADINONE ACETATE
     Indication: PRODUCT USED FOR UNKNOWN INDICATION
     Dosage: 5 MG, 1D
     Route: 048
     Dates: start: 201609
  7. HYDROCORTISONE. [Suspect]
     Active Substance: HYDROCORTISONE
     Indication: ADRENAL INSUFFICIENCY
     Dosage: UNK
     Route: 048
     Dates: start: 201609
  8. PANTOPRAZOLE [Suspect]
     Active Substance: PANTOPRAZOLE SODIUM
     Indication: GASTROOESOPHAGEAL REFLUX DISEASE
     Dosage: 40 MG, 1D
     Route: 048
     Dates: start: 201609
  9. SPECIAFOLDINE [Suspect]
     Active Substance: FOLIC ACID
     Indication: FOLATE DEFICIENCY
     Dosage: 5 MG, 1D
     Route: 048
     Dates: start: 201609
  10. SPASFON [Suspect]
     Active Substance: PHLOROGLUCINOL
     Indication: PAIN
     Dosage: UNK
     Route: 048
     Dates: start: 201609

REACTIONS (1)
  - Agranulocytosis [Not Recovered/Not Resolved]

NARRATIVE: CASE EVENT DATE: 20170121
